FAERS Safety Report 6952824-4 (Version None)
Quarter: 2010Q3

REPORT INFORMATION
  Report Type: 
  Country: None (occurrence: None)
  Receive Date: 20100829
  Receipt Date: 20100520
  Transmission Date: 20110219
  Serious: No
  Sender: FDA-Public Use
  Company Number: US-ABBOTT-10P-163-0646329-00

PATIENT
  Sex: Female
  Weight: 58.566 kg

DRUGS (3)
  1. NIASPAN [Suspect]
     Indication: HIGH DENSITY LIPOPROTEIN DECREASED
     Dosage: 1000MG AT BED TIME
     Dates: start: 20100520
  2. NIASPAN [Suspect]
     Dosage: ERRONEOUSLY TOOK 3 TABLETS AT BED TIME
     Dates: start: 20100520, end: 20100520
  3. ASPIRIN [Concomitant]
     Indication: PRODUCT USED FOR UNKNOWN INDICATION
     Dosage: 81MG AT BED TIME
     Route: 048

REACTIONS (6)
  - ACCIDENTAL OVERDOSE [None]
  - ERYTHEMA [None]
  - FLUSHING [None]
  - PRURITUS [None]
  - SKIN BURNING SENSATION [None]
  - SWELLING FACE [None]
